FAERS Safety Report 21772248 (Version 1)
Quarter: 2022Q4

REPORT INFORMATION
  Report Type: Spontaneous
  Country: US (occurrence: US)
  Receive Date: 20221223
  Receipt Date: 20221223
  Transmission Date: 20230113
  Serious: No
  Sender: FDA-Public Use
  Company Number: US-CTI BIOPHARMA-2022US03206

PATIENT

DRUGS (7)
  1. VONJO [Suspect]
     Active Substance: PACRITINIB
     Indication: Myelofibrosis
     Dosage: 200 MG, BID
     Route: 048
     Dates: start: 20221116
  2. ALLOPURINOL [Concomitant]
     Active Substance: ALLOPURINOL
  3. FLUOXETINE [Concomitant]
     Active Substance: FLUOXETINE HYDROCHLORIDE
  4. FOLIC ACID [Concomitant]
     Active Substance: FOLIC ACID
  5. LORAZEPAM [Concomitant]
     Active Substance: LORAZEPAM
  6. METOPROLOL [Concomitant]
     Active Substance: METOPROLOL
  7. PANTOPRAZOLE [Concomitant]
     Active Substance: PANTOPRAZOLE

REACTIONS (1)
  - Diarrhoea [Recovering/Resolving]
